FAERS Safety Report 9996565 (Version 1)
Quarter: 2014Q1

REPORT INFORMATION
  Report Type: Spontaneous
  Country: US (occurrence: None)
  Receive Date: 20140304
  Receipt Date: 20140304
  Transmission Date: 20141002
  Serious: Yes (Other)
  Sender: FDA-Public Use
  Company Number: RB-56531-2013

PATIENT
  Age: 47 Year
  Sex: Male

DRUGS (3)
  1. BUPRENORPHINE 2 MG (NONE) [Suspect]
     Indication: DRUG DEPENDENCE
     Route: 060
     Dates: start: 2012, end: 20130601
  2. SUBOXONE [Suspect]
     Indication: DRUG DEPENDENCE
     Dosage: (CUTTING INTO SMALL PIECES AND TAKE A PIECE EVERY THREE DAYS SUBLINGUAL)
     Route: 060
     Dates: start: 201306
  3. SUBOXONE [Suspect]
     Indication: DRUG DEPENDENCE
     Dosage: (SUBOXONE FILM; CUTTING INTO SMALL PIECES AND TAKING A PIECE EVERY THREE DAYS  SUBLINGUAL)
     Route: 060
     Dates: start: 201306

REACTIONS (8)
  - Withdrawal syndrome [None]
  - Weight decreased [None]
  - Hallucination [None]
  - Vomiting [None]
  - Dehydration [None]
  - Abdominal distension [None]
  - Wrong technique in drug usage process [None]
  - Substance abuse [None]
